FAERS Safety Report 6095429-2 (Version None)
Quarter: 2009Q1

REPORT INFORMATION
  Report Type: 
  Country: None (occurrence: None)
  Receive Date: 20090227
  Receipt Date: 20080418
  Transmission Date: 20090719
  Serious: Yes (Other)
  Sender: FDA-Public Use
  Company Number: A0718360A

PATIENT
  Age: 29 Year
  Sex: Female

DRUGS (3)
  1. LAMICTAL [Suspect]
     Indication: BIPOLAR DISORDER
     Dosage: 200MG PER DAY
     Route: 048
     Dates: start: 20050101
  2. BIRTH CONTROL [Concomitant]
  3. M.V.I. [Concomitant]

REACTIONS (1)
  - EXTRAPYRAMIDAL DISORDER [None]
